FAERS Safety Report 25050410 (Version 1)
Quarter: 2025Q1

REPORT INFORMATION
  Report Type: Spontaneous
  Country: US (occurrence: None)
  Receive Date: 20250306
  Receipt Date: 20250306
  Transmission Date: 20250409
  Serious: Yes (Life-Threatening, Hospitalization)
  Sender: FDA-CTU
  Company Number: None

PATIENT
  Age: 10 Year
  Sex: Male
  Weight: 40 kg

DRUGS (4)
  1. EMAPALUMAB [Suspect]
     Active Substance: EMAPALUMAB
     Indication: Haemophagocytic lymphohistiocytosis
     Route: 042
     Dates: start: 20240524, end: 20250131
  2. RUXOLITINIB [Concomitant]
     Active Substance: RUXOLITINIB
     Dates: start: 20240120
  3. CANAKINUMAB [Concomitant]
     Active Substance: CANAKINUMAB
     Dates: start: 20240605
  4. PREDNISONE [Concomitant]
     Active Substance: PREDNISONE
     Dates: start: 20231125

REACTIONS (4)
  - Disseminated mycobacterium avium complex infection [None]
  - Osteomyelitis [None]
  - Pneumonia [None]
  - Central nervous system infection [None]

NARRATIVE: CASE EVENT DATE: 20250204
